FAERS Safety Report 8474044-7 (Version None)
Quarter: 2012Q2

REPORT INFORMATION
  Report Type: 
  Country: None (occurrence: None)
  Receive Date: 20120628
  Receipt Date: 20120516
  Transmission Date: 20120825
  Serious: Yes (Other)
  Sender: FDA-Public Use
  Company Number: US-MYLANLABS-2012S1008622

PATIENT
  Age: 31 Year
  Sex: Male
  Weight: 117.94 kg

DRUGS (2)
  1. CLOZAPINE [Suspect]
     Indication: SCHIZOPHRENIA, PARANOID TYPE
  2. CLOZAPINE [Suspect]
     Route: 048

REACTIONS (1)
  - GRANULOCYTOPENIA [None]
